FAERS Safety Report 8611018-7 (Version None)
Quarter: 2012Q3

REPORT INFORMATION
  Report Type: 
  Country: None (occurrence: None)
  Receive Date: 20120822
  Receipt Date: 20120816
  Transmission Date: 20120928
  Serious: Yes (Hospitalization, Other)
  Sender: FDA-Public Use
  Company Number: US-PFIZER INC-2012201081

PATIENT
  Age: 84 Year
  Sex: Female
  Weight: 81.179 kg

DRUGS (4)
  1. TAMSULOSIN [Concomitant]
     Indication: URINARY TRACT DISORDER
     Dosage: 4 MG, DAILY
  2. LEVOTHYROXINE [Concomitant]
     Dosage: 25 MG, DAILY
  3. LYRICA [Suspect]
     Indication: NEUROPATHY PERIPHERAL
     Dosage: 75 MG, 2X/DAY
     Dates: start: 20070101
  4. FUROSEMIDE [Concomitant]
     Indication: URINARY TRACT DISORDER
     Dosage: 20 MG, DAILY

REACTIONS (1)
  - NEOPLASM MALIGNANT [None]
